FAERS Safety Report 10047383 (Version 2)
Quarter: 2014Q2

REPORT INFORMATION
  Report Type: Spontaneous
  Country: GB (occurrence: None)
  Receive Date: 20140327
  Receipt Date: 20140522
  Transmission Date: 20141212
  Serious: Yes (Other)
  Sender: FDA-Public Use
  Company Number: AUR-APL-2014-03641

PATIENT
  Sex: Male

DRUGS (1)
  1. CIPROFLOXACIN [Suspect]
     Indication: PRODUCT USED FOR UNKNOWN INDICATION
     Route: 048
     Dates: start: 2009

REACTIONS (8)
  - Convulsion [None]
  - Tremor [None]
  - Neuropathy peripheral [None]
  - Psychotic disorder [None]
  - Headache [None]
  - Pain [None]
  - Memory impairment [None]
  - Disturbance in attention [None]
